FAERS Safety Report 19416030 (Version 1)
Quarter: 2021Q2

REPORT INFORMATION
  Report Type: Spontaneous
  Country: JP (occurrence: JP)
  Receive Date: 20210614
  Receipt Date: 20210614
  Transmission Date: 20210717
  Serious: Yes (Other)
  Sender: FDA-Public Use
  Company Number: JP-DSJP-DSJ-2021-117487

PATIENT
  Age: 89 Year
  Sex: Female

DRUGS (2)
  1. LIXIANA TABLETS [Suspect]
     Active Substance: EDOXABAN TOSYLATE
     Indication: ATRIAL FIBRILLATION
     Dosage: 30MG/DAY
     Route: 048
  2. CIBENZOLINE SUCCINATE [Suspect]
     Active Substance: CIFENLINE SUCCINATE
     Indication: ATRIAL FIBRILLATION
     Dosage: 200MG/DAY
     Route: 048

REACTIONS (6)
  - Weight decreased [Unknown]
  - Thirst [Unknown]
  - Altered state of consciousness [Recovered/Resolved]
  - Renal impairment [Unknown]
  - Urinary retention [Unknown]
  - Constipation [Unknown]
